FAERS Safety Report 9683428 (Version 1)
Quarter: 2013Q4

REPORT INFORMATION
  Report Type: Spontaneous
  Country: DK (occurrence: DK)
  Receive Date: 20131112
  Receipt Date: 20131112
  Transmission Date: 20140711
  Serious: Yes (Hospitalization)
  Sender: FDA-Public Use
  Company Number: DK-NOVOPROD-391850

PATIENT
  Age: 76 Year
  Sex: Female
  Weight: 65 kg

DRUGS (7)
  1. VAGIFEM [Suspect]
     Indication: MUCOSAL DRYNESS
     Dosage: 25 UG, BIW
     Route: 067
     Dates: start: 20130511, end: 20130722
  2. AMLODIPIN ACTAVIS                  /00972402/ [Concomitant]
  3. LANSOPRAZOLE [Concomitant]
  4. SIMVASTATIN [Concomitant]
  5. PERSANTIN RETARD [Concomitant]
  6. HJERTEMAGNYL [Concomitant]
  7. CENTYL MED KALIUMKLORID [Concomitant]

REACTIONS (2)
  - Fibroadenoma of breast [Recovering/Resolving]
  - Amaurosis fugax [Recovered/Resolved with Sequelae]
